FAERS Safety Report 4377166-5 (Version None)
Quarter: 2004Q2

REPORT INFORMATION
  Report Type: 
  Country: None (occurrence: None)
  Receive Date: 20040608
  Receipt Date: 20040526
  Transmission Date: 20050107
  Serious: Yes (Other)
  Sender: FDA-Public Use
  Company Number: HQWYE121327MAY04

PATIENT

DRUGS (1)
  1. TAZOCILLINE (PIPERACILLINE/TAZOBACTAM) [Suspect]
     Indication: BRONCHOPNEUMONIA
     Dosage: 2.25 G QID   INTRAVENOUS
     Route: 042

REACTIONS (3)
  - CONVULSION [None]
  - DRUG TOXICITY [None]
  - OVERDOSE [None]
